FAERS Safety Report 12314912 (Version 1)
Quarter: 2016Q2

REPORT INFORMATION
  Report Type: Spontaneous
  Country: US (occurrence: US)
  Receive Date: 20160428
  Receipt Date: 20160428
  Transmission Date: 20160815
  Serious: No
  Sender: FDA-Public Use
  Company Number: US-MEDA-2016040067

PATIENT
  Age: 63 Year
  Sex: Male
  Weight: 86 kg

DRUGS (4)
  1. DYMISTA [Suspect]
     Active Substance: AZELASTINE HYDROCHLORIDE\FLUTICASONE PROPIONATE
     Indication: RHINITIS ALLERGIC
     Dates: end: 201510
  2. ADVAIR HFA [Concomitant]
     Active Substance: FLUTICASONE PROPIONATE\SALMETEROL XINAFOATE
     Indication: ASTHMA
  3. DYMISTA [Suspect]
     Active Substance: AZELASTINE HYDROCHLORIDE\FLUTICASONE PROPIONATE
     Indication: RHINITIS ALLERGIC
     Dates: start: 201603
  4. FLONASE [Concomitant]
     Active Substance: FLUTICASONE PROPIONATE

REACTIONS (5)
  - Insomnia [Recovered/Resolved]
  - Drug dose omission [Unknown]
  - Feeling abnormal [Recovered/Resolved]
  - Rhinorrhoea [Recovered/Resolved]
  - Snoring [Recovered/Resolved]

NARRATIVE: CASE EVENT DATE: 20151101
